FAERS Safety Report 21354064 (Version 1)
Quarter: 2022Q3

REPORT INFORMATION
  Report Type: Spontaneous
  Country: GB (occurrence: GB)
  Receive Date: 20220920
  Receipt Date: 20220920
  Transmission Date: 20221027
  Serious: Yes (Other)
  Sender: FDA-Public Use
  Company Number: None

PATIENT
  Age: 75 Year
  Sex: Female

DRUGS (12)
  1. FUROSEMIDE [Suspect]
     Active Substance: FUROSEMIDE
     Indication: Product used for unknown indication
     Dosage: MORNING, RESUMED ONCE AKI RESOLVED
  2. CARBOCYSTEINE [Concomitant]
     Active Substance: CARBOCYSTEINE
  3. COCODAMOL [Concomitant]
     Active Substance: ACETAMINOPHEN\CODEINE PHOSPHATE
     Dosage: TAKE 1-2 WHEN REQUIRED 30MG/500MG
  4. CALCIUM CARBONATE\CHOLECALCIFEROL [Concomitant]
     Active Substance: CALCIUM CARBONATE\CHOLECALCIFEROL
     Dosage: 1500MG/400UNIT
  5. FLUOXETINE [Concomitant]
     Active Substance: FLUOXETINE HYDROCHLORIDE
     Dosage: MORNING
  6. INSULIN HUMAN [Concomitant]
     Active Substance: INSULIN HUMAN
     Dosage: 3ML PRE-FILLED, 100UNITS/ML - 40 UNITS OM, 30 UNITS TEA
  7. LEVOTHYROXINE [Concomitant]
     Active Substance: LEVOTHYROXINE
     Dosage: MORNING
  8. LINAGLIPTIN [Concomitant]
     Active Substance: LINAGLIPTIN
     Dosage: MORNING
  9. ALBUTEROL [Concomitant]
     Active Substance: ALBUTEROL
     Dosage: WHEN REQUIRED
     Route: 055
  10. FLUTICASONE FUROATE\UMECLIDINIUM BROMIDE\VILANTEROL TRIFENATATE [Concomitant]
     Active Substance: FLUTICASONE FUROATE\UMECLIDINIUM BROMIDE\VILANTEROL TRIFENATATE
     Dosage: 92/55/22 MICROGRAMS/DOSE, DRY POWDER INHALER
     Route: 055
  11. TEICOPLANIN [Concomitant]
     Active Substance: TEICOPLANIN
     Dosage: INTRAOPERATIVE STAT DOSE
  12. CEFUROXIME [Concomitant]
     Active Substance: CEFUROXIME
     Dosage: INTRAOPERATIVE STAT DOSE

REACTIONS (1)
  - Acute kidney injury [Recovered/Resolved]

NARRATIVE: CASE EVENT DATE: 20220327
